FAERS Safety Report 5575057-5 (Version None)
Quarter: 2007Q4

REPORT INFORMATION
  Report Type: 
  Country: None (occurrence: None)
  Receive Date: 20071221
  Receipt Date: 20071221
  Transmission Date: 20080405
  Serious: Yes (Disabling)
  Sender: FDA-Public Use
  Company Number: None

PATIENT
  Age: 39 Year
  Sex: Female
  Weight: 65.7716 kg

DRUGS (1)
  1. CHANTIX [Suspect]
     Indication: SMOKING CESSATION THERAPY
     Dosage: 1 MG  2 X''S DAILY
     Dates: start: 20070924, end: 20071214

REACTIONS (5)
  - HALLUCINATIONS, MIXED [None]
  - MANIA [None]
  - SUICIDAL IDEATION [None]
  - THINKING ABNORMAL [None]
  - UNEMPLOYMENT [None]
